FAERS Safety Report 7796079-X (Version None)
Quarter: 2011Q4

REPORT INFORMATION
  Report Type: 
  Country: None (occurrence: None)
  Receive Date: 20111004
  Receipt Date: 20110926
  Transmission Date: 20120403
  Serious: Yes (Other)
  Sender: FDA-Public Use
  Company Number: US-CELGENEUS-163-20785-11052379

PATIENT
  Sex: Female
  Weight: 102.6 kg

DRUGS (7)
  1. THALOMID [Suspect]
     Indication: MULTIPLE MYELOMA
     Dosage: 100 MILLIGRAM
     Route: 048
     Dates: start: 20110124, end: 20110308
  2. AUGMENTIN '125' [Concomitant]
     Dosage: 875 MILLIGRAM
     Route: 048
     Dates: start: 20100201
  3. NEURONTIN [Concomitant]
     Dosage: 300 MILLIGRAM
     Route: 048
     Dates: start: 20101007
  4. DECADRON [Concomitant]
     Dosage: 40 MILLIGRAM
     Route: 048
  5. ZITHROMAX [Concomitant]
     Route: 065
     Dates: start: 20100201
  6. LEVOTHYROXINE [Concomitant]
     Indication: HYPOTHYROIDISM
     Dosage: 50 MICROGRAM
     Route: 048
  7. PRAVASTATIN [Concomitant]
     Dosage: 40 MILLIGRAM
     Route: 048

REACTIONS (6)
  - DISTURBANCE IN ATTENTION [None]
  - HEMIPARESIS [None]
  - FEELING ABNORMAL [None]
  - FATIGUE [None]
  - SALIVARY HYPERSECRETION [None]
  - DROOLING [None]
